FAERS Safety Report 13345178 (Version 1)
Quarter: 2017Q1

REPORT INFORMATION
  Report Type: Spontaneous
  Country: US (occurrence: US)
  Receive Date: 20170316
  Receipt Date: 20170316
  Transmission Date: 20170428
  Serious: Yes (Life-Threatening)
  Sender: FDA-Public Use
  Company Number: None

PATIENT
  Age: 60 Year
  Sex: Female
  Weight: 81.6 kg

DRUGS (3)
  1. OLANZAPINE. [Suspect]
     Active Substance: OLANZAPINE
     Indication: DELIRIUM
     Route: 048
     Dates: start: 20170227, end: 20170302
  2. OLANZAPINE. [Suspect]
     Active Substance: OLANZAPINE
     Indication: PARANOIA
     Route: 048
     Dates: start: 20170227, end: 20170302
  3. PIPERACILLIN/TAZOBACTAM [Suspect]
     Active Substance: PIPERACILLIN SODIUM\TAZOBACTAM SODIUM
     Indication: PNEUMONIA
     Route: 042
     Dates: start: 20170217, end: 20170302

REACTIONS (6)
  - Agranulocytosis [None]
  - Thrombocytopenia [None]
  - Haemorrhage [None]
  - Neutropenia [None]
  - Leukopenia [None]
  - Anaemia [None]

NARRATIVE: CASE EVENT DATE: 20170301
